FAERS Safety Report 17118118 (Version 2)
Quarter: 2020Q1

REPORT INFORMATION
  Report Type: Report from Study
  Country: JP (occurrence: JP)
  Receive Date: 20191205
  Receipt Date: 20200131
  Transmission Date: 20200409
  Serious: Yes (Hospitalization)
  Sender: FDA-Public Use
  Company Number: JP-REGENERON PHARMACEUTICALS, INC.-2019-69991

PATIENT

DRUGS (43)
  1. ADENOSINE TRIPHOSPHATE DISODIUM [Concomitant]
     Active Substance: ADENOSINE TRIPHOSPHATE DISODIUM
     Indication: NUTRITIONAL SUPPLEMENTATION
     Dosage: 300 MG, TID
     Route: 048
     Dates: start: 20190524
  2. KALLIDINOGENASE [Concomitant]
     Active Substance: KALLIDINOGENASE
     Indication: HYPERTENSION
     Dosage: 150 UNK, TID
     Route: 048
     Dates: start: 20190524
  3. AMPICILLIN SODIUM. [Concomitant]
     Active Substance: AMPICILLIN SODIUM
     Indication: INFECTION PROPHYLAXIS
     Dosage: 1.5 G, OTO
     Route: 042
     Dates: start: 20191105, end: 20191105
  4. BISOPROLOL FUMARATE. [Concomitant]
     Active Substance: BISOPROLOL FUMARATE
     Indication: HYPERTENSION
     Dosage: 5 MG, QD
     Route: 048
     Dates: start: 2013
  5. SODIUM HYALURONATE [Concomitant]
     Active Substance: HYALURONATE SODIUM
     Indication: EYE INFLAMMATION
     Dosage: 5 DROPS, AS NECESSARY
     Route: 047
     Dates: start: 20190524
  6. BERIZYM                            /01945301/ [Concomitant]
     Indication: GASTROINTESTINAL DISORDER
     Dosage: 3 G, TID
     Route: 048
     Dates: start: 20191024
  7. PREDNISOLONE. [Concomitant]
     Active Substance: PREDNISOLONE
     Indication: GASTROINTESTINAL DISORDER
     Dosage: 20 MG, QD
     Route: 048
     Dates: start: 20191108
  8. ENSURE [Concomitant]
     Active Substance: AMINO ACIDS\DEXTROSE\ELECTROLYTES NOS\SOYBEAN OIL\VITAMINS
     Indication: NUTRITIONAL SUPPLEMENTATION
     Dosage: 500 ML, QD
     Route: 048
     Dates: start: 20191111
  9. CEMIPLIMAB [Suspect]
     Active Substance: CEMIPLIMAB
     Indication: LUNG ADENOCARCINOMA STAGE IV
     Dosage: 350 MG, Q3W
     Route: 042
     Dates: start: 20190425, end: 20191002
  10. LEVOFLOXACINE                      /01278901/ [Concomitant]
     Active Substance: LEVOFLOXACIN
     Indication: EYE INFLAMMATION
     Dosage: 1 DROP, AS NECESSARY
     Route: 047
     Dates: start: 20190507
  11. CABAGIN KOWA ALPHA [Concomitant]
     Indication: GASTRITIS
     Dosage: 6 TABLETS, TID
     Route: 048
     Dates: start: 20191013, end: 20191127
  12. SOLACET D [Concomitant]
     Indication: NUTRITIONAL SUPPLEMENTATION
     Dosage: 500 ML, AS NECESSARY
     Route: 042
     Dates: start: 20191023
  13. SODIUM CHLORIDE. [Concomitant]
     Active Substance: SODIUM CHLORIDE
     Dosage: 250 ML, AS NECESSARY
     Route: 042
     Dates: start: 20191029
  14. SODIUM CHLORIDE. [Concomitant]
     Active Substance: SODIUM CHLORIDE
     Dosage: 500 ML, AS NECESSARY
     Route: 042
     Dates: start: 20191031
  15. ELENTAL [Concomitant]
     Active Substance: AMINO ACIDS\CARBOHYDRATES\MINERALS\SOYBEAN OIL\VITAMINS
     Indication: NUTRITIONAL SUPPLEMENTATION
     Dosage: 160 G, BID
     Route: 048
     Dates: start: 20191111
  16. MAGNESIUM CITRATE. [Concomitant]
     Active Substance: MAGNESIUM CITRATE
     Indication: COLONOSCOPY
     Dosage: 100 G, OTO
     Route: 048
     Dates: start: 20191101, end: 20191101
  17. SENNOSIDE                          /00571901/ [Concomitant]
     Active Substance: SENNOSIDES A AND B
     Indication: CONSTIPATION PROPHYLAXIS
     Dosage: 80 MG, OTO
     Route: 048
     Dates: start: 20191101, end: 20191101
  18. RAMELTEON [Concomitant]
     Active Substance: RAMELTEON
     Indication: INSOMNIA
     Dosage: 8 MG, QD
     Route: 048
     Dates: start: 20191114
  19. SCOPOLAMINE BUTYLBROMIDE [Concomitant]
     Active Substance: SCOPOLAMINE
     Indication: ENDOSCOPY
     Dosage: N/A, N/A, OTO
     Route: 042
     Dates: start: 20191101, end: 20191101
  20. SANTE DE U PLUS E ALFA [Concomitant]
     Indication: VITREOUS FLOATERS
     Dosage: 1 DROP, AS NECESSARY
     Route: 047
  21. SODIUM CHLORIDE. [Concomitant]
     Active Substance: SODIUM CHLORIDE
     Indication: GASTROINTESTINAL DISORDER
     Dosage: 50 ML, AS NECESSARY
     Route: 042
     Dates: start: 20191023
  22. LANSOPRAZOLE. [Concomitant]
     Active Substance: LANSOPRAZOLE
     Indication: GASTROINTESTINAL DISORDER
     Dosage: 30 MG, AS NECESSARY
     Route: 042
     Dates: start: 20191023
  23. GLUACETO 35 [Concomitant]
     Indication: NUTRITIONAL SUPPLEMENTATION
     Dosage: 500 ML, QD
     Route: 042
     Dates: start: 20191030
  24. INSULIN HUMAN [Concomitant]
     Active Substance: INSULIN HUMAN
     Indication: PARENTERAL NUTRITION
     Dosage: 15 IU, QD
     Route: 042
     Dates: start: 20191107
  25. PREDNISOLONE SODIUM SUCCINATE [Concomitant]
     Active Substance: PREDNISOLONE SODIUM SUCCINATE
     Indication: GASTROINTESTINAL DISORDER
     Dosage: 20 MG, QD
     Route: 042
     Dates: start: 20191108
  26. LOXOPROFEN SODIUM HYDRATE [Concomitant]
     Active Substance: LOXOPROFEN SODIUM DIHYDRATE
     Indication: ANALGESIC THERAPY
     Dosage: 60 MG, AS NECESSARY
     Route: 048
     Dates: start: 20191107
  27. MIDAZOLAM HYDROCHLORIDE. [Concomitant]
     Active Substance: MIDAZOLAM HYDROCHLORIDE
     Indication: ENDOSCOPY
     Dosage: 10 MG, OTO
     Route: 042
     Dates: start: 20191101, end: 20191101
  28. SOLDEM 3A [Concomitant]
     Active Substance: CARBOHYDRATES\POTASSIUM CHLORIDE\SODIUM CHLORIDE\SODIUM LACTATE
     Indication: NUTRITIONAL SUPPLEMENTATION
     Dosage: 500 ML, AS NECESSARY
     Route: 042
     Dates: start: 20191023
  29. VITAMEDIN INTRAVENOUS [Concomitant]
     Active Substance: CYANOCOBALAMIN\PYRIDOXINE HYDROCHLORIDE\THIAMINE
     Indication: NUTRITIONAL SUPPLEMENTATION
     Dosage: 1 VIAL, OTO
     Route: 042
     Dates: start: 20191023
  30. BFLUID [Concomitant]
     Active Substance: AMINO ACIDS\DEXTROSE\ELECTROLYTES NOS\VITAMINS
     Indication: NUTRITIONAL SUPPLEMENTATION
     Dosage: 500 ML, QD
     Route: 042
     Dates: start: 20191024
  31. HEPARIN SODIUM. [Concomitant]
     Active Substance: HEPARIN SODIUM
     Indication: THROMBOSIS PROPHYLAXIS
     Dosage: 500 IU, QD
     Route: 042
     Dates: start: 20191028
  32. MOSAPRIDE CITRATE [Concomitant]
     Active Substance: MOSAPRIDE CITRATE
     Indication: GASTROINTESTINAL DISORDER
     Dosage: 15 MG, TID
     Route: 048
     Dates: start: 20191031
  33. SUVOREXANT. [Concomitant]
     Active Substance: SUVOREXANT
     Indication: INSOMNIA
     Dosage: 15 MG, QD
     Route: 048
     Dates: start: 20191114
  34. ATORVASTATIN                       /01326106/ [Concomitant]
     Indication: HYPERLIPIDAEMIA
     Dosage: 10 MG, QD
     Route: 048
     Dates: start: 20190427
  35. MECOBALAMIN [Concomitant]
     Active Substance: METHYLCOBALAMIN
     Indication: NUTRITIONAL SUPPLEMENTATION
     Dosage: 1.5 MG, TID
     Route: 048
     Dates: start: 20190524
  36. OFLOXACIN. [Concomitant]
     Active Substance: OFLOXACIN
     Indication: EYE INFLAMMATION
     Dosage: N/A, N/A, AS NECESSARY
     Route: 050
     Dates: start: 20190524
  37. FULCALIQ [Concomitant]
     Active Substance: AMINO ACIDS\CARBOHYDRATES\ELECTROLYTES NOS\VITAMINS
     Indication: NUTRITIONAL SUPPLEMENTATION
     Dosage: 1003 ML, QD
     Route: 042
     Dates: start: 20191106
  38. ESZOPICLONE. [Concomitant]
     Active Substance: ESZOPICLONE
     Indication: INSOMNIA
     Dosage: 1 MG, AS NECESSARY
     Route: 048
     Dates: start: 20191024
  39. LANSOPRAZOLE. [Concomitant]
     Active Substance: LANSOPRAZOLE
     Dosage: 15 MG, QD
     Route: 048
     Dates: start: 20191023
  40. PETHIDINE HYDROCHLORIDE [Concomitant]
     Active Substance: MEPERIDINE HYDROCHLORIDE
     Indication: ANALGESIC THERAPY
     Dosage: 35 MG, QD
     Route: 042
     Dates: start: 20191101
  41. MAGNESIUM OXIDE. [Concomitant]
     Active Substance: MAGNESIUM OXIDE
     Indication: CONSTIPATION PROPHYLAXIS
     Dosage: 990 MG, TID
     Route: 048
     Dates: start: 20191024
  42. PROCHLORPERAZINE MALEATE. [Concomitant]
     Active Substance: PROCHLORPERAZINE MALEATE
     Indication: PROPHYLAXIS OF NAUSEA AND VOMITING
     Dosage: 5 MG, AS NECESSARY
     Route: 048
     Dates: start: 20191103
  43. REBAMIPIDE [Concomitant]
     Active Substance: REBAMIPIDE
     Indication: GASTRITIS PROPHYLAXIS
     Dosage: 100 MG, AS NECESSARY
     Route: 048
     Dates: start: 20191111

REACTIONS (1)
  - Encephalitis [Not Recovered/Not Resolved]

NARRATIVE: CASE EVENT DATE: 20191023
